FAERS Safety Report 23420851 (Version 2)
Quarter: 2024Q1

REPORT INFORMATION
  Report Type: Spontaneous
  Country: US (occurrence: US)
  Receive Date: 20240119
  Receipt Date: 20240304
  Transmission Date: 20240410
  Serious: No
  Sender: FDA-Public Use
  Company Number: US-862174955-ML2024-00096

PATIENT
  Age: 63 Year
  Sex: Male

DRUGS (3)
  1. DORZOLAMIDE\TIMOLOL [Suspect]
     Active Substance: DORZOLAMIDE\TIMOLOL
     Indication: Glaucoma
     Dosage: 1 DROP IN BOTH THE EYES; TWICE A DAY (MORNING AND EVENING)
     Route: 047
     Dates: start: 20231221
  2. LUMIGAN [Concomitant]
     Active Substance: BIMATOPROST
     Indication: Glaucoma
     Dates: start: 2016
  3. COMBIGAN [Concomitant]
     Active Substance: BRIMONIDINE TARTRATE\TIMOLOL MALEATE
     Indication: Glaucoma
     Dates: start: 2016

REACTIONS (3)
  - Product container issue [Unknown]
  - Product dose omission issue [Unknown]
  - No adverse event [Unknown]
